FAERS Safety Report 5215802-1 (Version None)
Quarter: 2007Q1

REPORT INFORMATION
  Report Type: 
  Country: None (occurrence: None)
  Receive Date: 20070118
  Receipt Date: 20070111
  Transmission Date: 20070707
  Serious: Yes (Hospitalization, Other)
  Sender: FDA-Public Use
  Company Number: C204

PATIENT
  Age: 22 Year
  Sex: Female
  Weight: 61.2356 kg

DRUGS (10)
  1. MERETEK UBT KIT (W/ PRANACTIN) [Suspect]
     Indication: HELICOBACTER INFECTION
     Dosage: ONE POUCH PER TEST (3G)
     Dates: start: 20070111
  2. PROTNIX [Concomitant]
  3. PEPSID AC, RX [Concomitant]
  4. ZANTAC [Concomitant]
  5. VICODIN [Concomitant]
  6. BENADRYL [Concomitant]
  7. PREDNISONE [Concomitant]
  8. ANZEMET [Concomitant]
  9. SOLU-MEDROL [Concomitant]
  10. EPIPEN [Concomitant]

REACTIONS (8)
  - ANXIETY [None]
  - DISCOMFORT [None]
  - FEELING ABNORMAL [None]
  - FEELING HOT AND COLD [None]
  - FLUSHING [None]
  - HYPERHIDROSIS [None]
  - HYPOAESTHESIA [None]
  - PALPITATIONS [None]
